FAERS Safety Report 4593912-X (Version None)
Quarter: 2005Q1

REPORT INFORMATION
  Report Type: 
  Country: None (occurrence: None)
  Receive Date: 20050217
  Receipt Date: 20050209
  Transmission Date: 20050727
  Serious: Yes (Life-Threatening, Hospitalization, Other)
  Sender: FDA-Public Use
  Company Number: HQWYE774206DEC04

PATIENT
  Sex: Male

DRUGS (2)
  1. BENEFIX [Suspect]
     Indication: PROPHYLAXIS
     Dosage: 15,000 UNITS EVERY DAY  INTRAVENOUS
     Route: 042
  2. CLOXACILLIN (CLOXACILIN) [Concomitant]

REACTIONS (1)
  - OEDEMA [None]
